FAERS Safety Report 19275178 (Version 2)
Quarter: 2021Q2

REPORT INFORMATION
  Report Type: Spontaneous
  Country: PL (occurrence: PL)
  Receive Date: 20210519
  Receipt Date: 20210601
  Transmission Date: 20210717
  Serious: Yes (Other)
  Sender: FDA-Public Use
  Company Number: NVSC2021PL104234

PATIENT
  Age: 59 Year
  Sex: Male

DRUGS (2)
  1. MIDOSTAURIN [Suspect]
     Active Substance: MIDOSTAURIN
     Indication: ACUTE MYELOID LEUKAEMIA
     Dosage: UNK
     Route: 065
  2. MIDOSTAURIN [Suspect]
     Active Substance: MIDOSTAURIN
     Dosage: 2ND INDUCTION CYCLE
     Route: 065
     Dates: start: 202004

REACTIONS (5)
  - COVID-19 pneumonia [Unknown]
  - Infected vasculitis [Unknown]
  - Bone marrow failure [Unknown]
  - Red blood cell count decreased [Unknown]
  - Platelet count decreased [Unknown]
